FAERS Safety Report 12458914 (Version 14)
Quarter: 2016Q4

REPORT INFORMATION
  Report Type: Report from Study
  Country: DE (occurrence: DE)
  Receive Date: 20160613
  Receipt Date: 20161227
  Transmission Date: 20170207
  Serious: Yes (Death, Hospitalization, Other)
  Sender: FDA-Public Use
  Company Number: PHHO2016DE001243

PATIENT
  Age: 68 Year
  Sex: Male

DRUGS (6)
  1. AMLODIPIN [Concomitant]
     Active Substance: AMLODIPINE BESYLATE
     Indication: HYPERTENSION
     Dosage: UNK
     Route: 065
  2. CERTICAN [Suspect]
     Active Substance: EVEROLIMUS
     Indication: RENAL TRANSPLANT
     Dosage: 3.5 MG (2-0-1.5), QD
     Route: 048
     Dates: start: 20150613, end: 201606
  3. TACROLIMUS. [Suspect]
     Active Substance: TACROLIMUS
     Indication: RENAL TRANSPLANT
     Dosage: 3.5 MG (2-0-1.5), QD
     Route: 048
     Dates: start: 20150612, end: 20160704
  4. TAMSULOSIN [Concomitant]
     Active Substance: TAMSULOSIN
     Indication: BENIGN PROSTATIC HYPERPLASIA
     Dosage: UNK
     Route: 065
  5. BICANORM [Concomitant]
     Active Substance: SODIUM BICARBONATE
     Indication: METABOLIC ACIDOSIS
     Dosage: UNK
     Route: 065
  6. PREDNISON [Concomitant]
     Active Substance: PREDNISONE
     Indication: RENAL TRANSPLANT
     Dosage: 5 MG, UNK
     Route: 065
     Dates: start: 20150613

REACTIONS (5)
  - Death [Fatal]
  - Metastases to bone [Not Recovered/Not Resolved]
  - Concomitant disease aggravated [Recovered/Resolved]
  - Lung neoplasm malignant [Not Recovered/Not Resolved]
  - Benign prostatic hyperplasia [Recovered/Resolved]

NARRATIVE: CASE EVENT DATE: 20151207
